FAERS Safety Report 9385082 (Version 1)
Quarter: 2013Q3

REPORT INFORMATION
  Report Type: Spontaneous
  Country: IT (occurrence: IT)
  Receive Date: 20130705
  Receipt Date: 20130705
  Transmission Date: 20140515
  Serious: Yes (Hospitalization)
  Sender: FDA-Public Use
  Company Number: IT-ASTRAZENECA-2013SE49471

PATIENT
  Age: 29728 Day
  Sex: Male

DRUGS (3)
  1. TICAGRELOR [Suspect]
     Indication: CORONARY REVASCULARISATION
     Route: 048
     Dates: start: 20130423, end: 20130424
  2. ABCIXIMAB [Suspect]
     Indication: CORONARY REVASCULARISATION
     Route: 042
     Dates: start: 20130424, end: 20130624
  3. ASA [Concomitant]

REACTIONS (5)
  - Pericardial effusion [Recovered/Resolved with Sequelae]
  - Pleural effusion [Recovered/Resolved with Sequelae]
  - Thrombocytopenia [Recovered/Resolved with Sequelae]
  - Epidermolysis [Recovered/Resolved with Sequelae]
  - Haematemesis [Recovered/Resolved with Sequelae]
